FAERS Safety Report 23405163 (Version 1)
Quarter: 2024Q1

REPORT INFORMATION
  Report Type: Spontaneous
  Country: US (occurrence: None)
  Receive Date: 20240112
  Receipt Date: 20240112
  Transmission Date: 20240409
  Serious: No
  Sender: FDA-Public Use
  Company Number: None

PATIENT
  Sex: 0

DRUGS (1)
  1. LOVASTATIN [Suspect]
     Active Substance: LOVASTATIN

REACTIONS (3)
  - Pain [None]
  - Muscle spasms [None]
  - Loss of personal independence in daily activities [None]
